FAERS Safety Report 5228337-7 (Version None)
Quarter: 2007Q1

REPORT INFORMATION
  Report Type: 
  Country: None (occurrence: None)
  Receive Date: 20070131
  Receipt Date: 20070115
  Transmission Date: 20070707
  Serious: Yes (Life-Threatening, Hospitalization)
  Sender: FDA-Public Use
  Company Number: DSA_29287_2007

PATIENT
  Age: 33 Year
  Sex: Female

DRUGS (3)
  1. LORAZEPAM [Suspect]
     Dosage: 50 MG ONCE
     Dates: start: 19981001, end: 19981001
  2. EFFEXOR [Suspect]
     Dosage: 1000 MG ONCE PO
     Route: 048
     Dates: start: 19981001, end: 19981001
  3. CLORAZEPATE [Suspect]
     Dosage: 300 MG ONCE
     Dates: start: 19981001, end: 19981001

REACTIONS (3)
  - FEELING DRUNK [None]
  - OVERDOSE [None]
  - SOMNOLENCE [None]
